FAERS Safety Report 17892061 (Version 1)
Quarter: 2020Q2

REPORT INFORMATION
  Report Type: Spontaneous
  Country: DK (occurrence: DK)
  Receive Date: 20200612
  Receipt Date: 20200612
  Transmission Date: 20200714
  Serious: Yes (Hospitalization, Other)
  Sender: FDA-Public Use
  Company Number: DK-BRISTOL-MYERS SQUIBB COMPANY-BMS-2020-044884

PATIENT
  Age: 66 Year
  Sex: Male

DRUGS (9)
  1. MESALAZINE [Concomitant]
     Active Substance: MESALAMINE
     Indication: COLITIS ULCERATIVE
     Dosage: STYRKE: 2 G
     Route: 048
     Dates: start: 20200302
  2. YERVOY [Suspect]
     Active Substance: IPILIMUMAB
     Indication: MALIGNANT MELANOMA
     Dosage: 240 MILLIGRAM/STYRKE: 5 MG/ML
     Route: 042
     Dates: start: 20200429, end: 20200429
  3. KALEORID [Concomitant]
     Active Substance: POTASSIUM CHLORIDE
     Indication: BLOOD POTASSIUM DECREASED
     Dosage: STYRKE: 750 MG
     Route: 048
     Dates: start: 20200312, end: 20200512
  4. PREDNISOLONE. [Concomitant]
     Active Substance: PREDNISOLONE
     Indication: ADRENOCORTICAL STEROID THERAPY
     Dosage: STYRKE: 5 MG
     Route: 048
     Dates: start: 20200408
  5. DERMOVAT [BETAMETHASONE VALERATE] [Concomitant]
     Indication: ECZEMA
     Dosage: STYRKE: 0,5 MG/G
     Route: 003
     Dates: start: 20200407
  6. OXYCODONE HYDROCHLORIDE. [Concomitant]
     Active Substance: OXYCODONE HYDROCHLORIDE
     Indication: PAIN
     Dosage: STYRKE: 5 MG DOSIS: HOJST 6 GANGE DAGLIGT
     Route: 048
     Dates: start: 20200304
  7. PARACETAMOL [Concomitant]
     Active Substance: ACETAMINOPHEN
     Indication: PAIN
     Dosage: STYRKE: 500 MG DOSIS: HOJST 4 GANGE DAGLIGT
     Route: 048
     Dates: start: 20200103
  8. DOMPERIDONE [Concomitant]
     Active Substance: DOMPERIDONE
     Indication: CHEMOTHERAPY SIDE EFFECT PROPHYLAXIS
     Dosage: STYRKE: 10 MG DOSIS: HOJST 3 GANGE DAGLIGT
     Route: 048
     Dates: start: 20181219
  9. KETOTIFEN [Concomitant]
     Active Substance: KETOTIFEN
     Indication: CONJUNCTIVITIS ALLERGIC
     Dosage: STYRKE: 0,25 MG/ML
     Route: 050
     Dates: start: 20171020

REACTIONS (5)
  - Troponin increased [Recovering/Resolving]
  - Myocarditis [Recovering/Resolving]
  - Pyrexia [Unknown]
  - C-reactive protein increased [Recovering/Resolving]
  - Blood creatine phosphokinase MB increased [Recovering/Resolving]

NARRATIVE: CASE EVENT DATE: 202005
